FAERS Safety Report 9399939 (Version 1)
Quarter: 2013Q3

REPORT INFORMATION
  Report Type: Spontaneous
  Country: US (occurrence: US)
  Receive Date: 20130715
  Receipt Date: 20130715
  Transmission Date: 20140515
  Serious: No
  Sender: FDA-Public Use
  Company Number: US-TEVA-418234USA

PATIENT
  Age: 24 Year
  Sex: Female
  Weight: 90.8 kg

DRUGS (3)
  1. PARAGARD 380A [Suspect]
     Indication: CONTRACEPTION
     Route: 015
     Dates: start: 201208, end: 20130709
  2. LEVOTHYROXINE [Concomitant]
     Indication: HYPOTHYROIDISM
  3. PAXIL [Concomitant]
     Indication: ANXIETY

REACTIONS (2)
  - Menorrhagia [Unknown]
  - Dyspareunia [Unknown]
